FAERS Safety Report 4829164-2 (Version None)
Quarter: 2005Q4

REPORT INFORMATION
  Report Type: 
  Country: None (occurrence: None)
  Receive Date: 20051027
  Receipt Date: 20050301
  Transmission Date: 20060501
  Serious: Yes (Life-Threatening, Hospitalization, Other)
  Sender: FDA-Public Use
  Company Number: USA-2005-0019119

PATIENT
  Age: 75 Year
  Sex: Female

DRUGS (4)
  1. SPECTRACEF [Suspect]
     Indication: BRONCHITIS ACUTE
     Dosage: 400 MG, BID, UNKNOWN
     Route: 065
     Dates: start: 20050111, end: 20050115
  2. LIPITOR [Concomitant]
  3. FOSAMAX [Concomitant]
  4. MOBIC [Concomitant]

REACTIONS (1)
  - CLOSTRIDIUM COLITIS [None]
